FAERS Safety Report 10182702 (Version 1)
Quarter: 2014Q2

REPORT INFORMATION
  Report Type: Spontaneous
  Country: US (occurrence: None)
  Receive Date: 20140416
  Receipt Date: 20140416
  Transmission Date: 20141212
  Serious: No
  Sender: FDA-Public Use
  Company Number: 163-POMAL-13103154

PATIENT
  Age: 73 Year
  Sex: Female
  Weight: 99.79 kg

DRUGS (7)
  1. POMALYST [Suspect]
     Indication: PLASMA CELL MYELOMA
     Dosage: 4 MG, 21 IN 21 D, PO
     Route: 048
     Dates: start: 20130917
  2. DILANTIN(PHENYTOIN SODIUM) [Concomitant]
  3. HIGH BLOOD PRESSURE MEDICATION [Concomitant]
  4. DIABETIC MEDICATION [Concomitant]
  5. STEROIDS(UNSPECIFIED TRADITIONAL MEDICINE) [Concomitant]
  6. SYNTHROID(LEVOTHYROXINE SODIUM) [Concomitant]
  7. TAMOXIFEN(TAMOXIFEN) [Concomitant]

REACTIONS (5)
  - Pruritus generalised [None]
  - Alopecia [None]
  - Urticaria [None]
  - Flatulence [None]
  - Contusion [None]
